FAERS Safety Report 10810107 (Version 1)
Quarter: 2015Q1

REPORT INFORMATION
  Report Type: Spontaneous
  Country: US (occurrence: None)
  Receive Date: 20150212
  Receipt Date: 20150212
  Transmission Date: 20150721
  Serious: Yes (Hospitalization, Other)
  Sender: FDA-Public Use
  Company Number: LH201500097

PATIENT
  Age: 22 Year
  Sex: Female

DRUGS (5)
  1. PRENATAL VITAMINS (ASCORBIC ACID, BIOTIN, MINERALS NOS, NICOTINIC ACID, RETINOL, TOCOPHEROL, VITAMIN B NOS, VITAMIN D NOS) [Concomitant]
  2. MAKENA [Suspect]
     Active Substance: HYDROXYPROGESTERONE CAPROATE
     Indication: PREMATURE DELIVERY
     Dosage: 250 MG, ONE WEEKLY, INTRAMUSCULAR
     Route: 030
     Dates: start: 20140912, end: 20150109
  3. NIFEDIPINE. [Concomitant]
     Active Substance: NIFEDIPINE
  4. ZOFRAN (ONDANSETRON) [Concomitant]
  5. ZOLOFT [Concomitant]
     Active Substance: SERTRALINE HYDROCHLORIDE

REACTIONS (3)
  - Premature delivery [None]
  - Premature labour [None]
  - Threatened labour [None]

NARRATIVE: CASE EVENT DATE: 20150106
